FAERS Safety Report 6448788-2 (Version None)
Quarter: 2009Q4

REPORT INFORMATION
  Report Type: 
  Country: None (occurrence: None)
  Receive Date: 20091119
  Receipt Date: 20091119
  Transmission Date: 20100525
  Serious: Yes (Hospitalization)
  Sender: FDA-Public Use
  Company Number: None

PATIENT
  Sex: Female
  Weight: 47.9 kg

DRUGS (1)
  1. SOLIRIS [Suspect]
     Dosage: 1200 MG TWICE IV 600 MG SIX IV PREVENT ALLOGRAFT REJECTION
     Route: 042

REACTIONS (8)
  - DIARRHOEA [None]
  - DYSPEPSIA [None]
  - HYPERCALCAEMIA [None]
  - HYPERPARATHYROIDISM [None]
  - HYPOPHOSPHATAEMIA [None]
  - NAUSEA [None]
  - OESOPHAGITIS ULCERATIVE [None]
  - VOMITING [None]
